FAERS Safety Report 12409578 (Version 2)
Quarter: 2016Q2

REPORT INFORMATION
  Report Type: Spontaneous
  Country: CA (occurrence: CA)
  Receive Date: 20160526
  Receipt Date: 20160617
  Transmission Date: 20160815
  Serious: Yes (Hospitalization, Other)
  Sender: FDA-Public Use
  Company Number: CA-009507513-1601CAN006688

PATIENT
  Age: 60 Year
  Sex: Male

DRUGS (2)
  1. TEMODAL [Suspect]
     Active Substance: TEMOZOLOMIDE
     Dosage: 100 MG, QD
     Route: 048
     Dates: start: 2016
  2. TEMODAL [Suspect]
     Active Substance: TEMOZOLOMIDE
     Indication: GLIOBLASTOMA
     Dosage: 100 MG, QD
     Route: 048
     Dates: start: 20150818

REACTIONS (11)
  - Seizure [Unknown]
  - Wound infection [Unknown]
  - Glioblastoma [Unknown]
  - Seizure [Unknown]
  - Aphasia [Unknown]
  - Gait disturbance [Unknown]
  - Immune system disorder [Unknown]
  - Drug effect decreased [Unknown]
  - Dysarthria [Unknown]
  - Skin irritation [Unknown]
  - Infection [Unknown]

NARRATIVE: CASE EVENT DATE: 20160223
